FAERS Safety Report 4305487-0 (Version None)
Quarter: 2004Q1

REPORT INFORMATION
  Report Type: 
  Country: None (occurrence: None)
  Receive Date: 20040226
  Receipt Date: 20031016
  Transmission Date: 20041129
  Serious: No
  Sender: FDA-Public Use
  Company Number: US-BRISTOL-MYERS SQUIBB COMPANY-12412342

PATIENT
  Age: 39 Year
  Sex: Male
  Weight: 100 kg

DRUGS (5)
  1. ABILIFY [Suspect]
     Indication: PSYCHOTIC DISORDER
     Route: 048
     Dates: start: 20030205
  2. STRATTERA [Concomitant]
  3. LITHIUM CARBONATE [Concomitant]
  4. ESCITALOPRAM [Concomitant]
  5. TRAZODONE HCL [Concomitant]

REACTIONS (4)
  - ALCOHOL USE [None]
  - DEPRESSION [None]
  - HALLUCINATION [None]
  - TARDIVE DYSKINESIA [None]
